FAERS Safety Report 25729876 (Version 1)
Quarter: 2025Q3

REPORT INFORMATION
  Report Type: Spontaneous
  Country: EU (occurrence: EU)
  Receive Date: 20250827
  Receipt Date: 20250827
  Transmission Date: 20251020
  Serious: Yes (Other)
  Sender: RANBAXY
  Company Number: EU-SUN PHARMACEUTICAL INDUSTRIES LTD-2025RR-524678

PATIENT
  Age: 23 Year
  Sex: Female

DRUGS (2)
  1. OXALIPLATIN [Suspect]
     Active Substance: OXALIPLATIN
     Indication: Rectal adenocarcinoma
     Dosage: 50 MILLIGRAM/KILOGRAM, WEEKLY
     Route: 065
     Dates: start: 202003, end: 202005
  2. FLUOROURACIL [Suspect]
     Active Substance: FLUOROURACIL
     Indication: Rectal adenocarcinoma
     Route: 065
     Dates: start: 202003, end: 202005

REACTIONS (9)
  - Diarrhoea [Unknown]
  - Fatigue [Unknown]
  - Alopecia [Unknown]
  - Vomiting [Unknown]
  - Amenorrhoea [Unknown]
  - Premature menopause [Unknown]
  - Hot flush [Unknown]
  - Headache [Unknown]
  - Skin striae [Unknown]
